FAERS Safety Report 8406976-X (Version None)
Quarter: 2012Q2

REPORT INFORMATION
  Report Type: 
  Country: None (occurrence: None)
  Receive Date: 20120529
  Receipt Date: 20051027
  Transmission Date: 20120825
  Serious: Yes (Life-Threatening)
  Sender: FDA-Public Use
  Company Number: 02100-JPN-05-0405

PATIENT
  Age: 71 Year
  Sex: Female
  Weight: 34.8 kg

DRUGS (13)
  1. ETODOLAC [Suspect]
     Indication: RHEUMATOID ARTHRITIS
     Dosage: 200 MG, BID, ORAL
     Route: 048
     Dates: start: 20050711, end: 20050812
  2. PREDNISOLONE [Concomitant]
  3. THEOLONG (THEOPHYLLINE) [Concomitant]
  4. LANSOPRAZOLE [Concomitant]
  5. ALDACTONE [Concomitant]
  6. RIMATIL (BUCILLAMINE) TABLET, 50MG [Suspect]
     Indication: RHEUMATOID ARTHRITIS
     Dosage: 100 MG, BID, ORAL
     Route: 048
     Dates: start: 20010402, end: 20050812
  7. MERISLON (BETAHISTINE HYDROCHLORIDE) [Concomitant]
  8. ACECOL (TEMOCAPRIL HYDROCHLORIDE) [Concomitant]
  9. SELBEX (TEPRENONE) [Concomitant]
  10. ALOTEC (ORCIPRENALINE SULFATE) [Concomitant]
  11. ASPARA K (ASPARTATE POTASSIUM) [Concomitant]
  12. PLETAL [Suspect]
     Indication: CEREBELLAR INFARCTION
     Dosage: 100 MG, BID, ORAL
     Route: 048
     Dates: start: 20050625, end: 20050812
  13. LASIX [Concomitant]

REACTIONS (5)
  - PYREXIA [None]
  - CARDIAC DISORDER [None]
  - AGRANULOCYTOSIS [None]
  - AORTIC DISSECTION [None]
  - DYSPNOEA [None]
